FAERS Safety Report 7601203-5 (Version None)
Quarter: 2011Q3

REPORT INFORMATION
  Report Type: 
  Country: None (occurrence: None)
  Receive Date: 20110711
  Receipt Date: 20110630
  Transmission Date: 20111222
  Serious: Yes (Other)
  Sender: FDA-Public Use
  Company Number: JP-GLAXOSMITHKLINE-B0722990A

PATIENT
  Sex: Female
  Weight: 54 kg

DRUGS (4)
  1. BETAMETHASONE [Concomitant]
  2. MAGNESIUM SULPHATE + GLUCOSE [Concomitant]
     Route: 042
  3. RITODRINE HYDROCHLORIDE [Concomitant]
  4. ARIXTRA [Suspect]
     Indication: THROMBOSIS PROPHYLAXIS
     Dosage: 2.5MG PER DAY
     Route: 058
     Dates: start: 20110516, end: 20110518

REACTIONS (9)
  - HAEMATOMA [None]
  - HAEMORRHAGIC DIATHESIS [None]
  - ANAEMIA [None]
  - DEEP VEIN THROMBOSIS [None]
  - HAEMORRHAGIC ASCITES [None]
  - DISSEMINATED INTRAVASCULAR COAGULATION [None]
  - PELVIC VENOUS THROMBOSIS [None]
  - CARDIOVASCULAR DISORDER [None]
  - FLUID RETENTION [None]
